FAERS Safety Report 5080409-6 (Version None)
Quarter: 2006Q3

REPORT INFORMATION
  Report Type: 
  Country: None (occurrence: None)
  Receive Date: 20060814
  Receipt Date: 20060814
  Transmission Date: 20061208
  Serious: Yes (Hospitalization)
  Sender: FDA-Public Use
  Company Number: None

PATIENT
  Age: 59 Year
  Sex: Female
  Weight: 45.8133 kg

DRUGS (11)
  1. ERBITUX [Suspect]
     Indication: BREAST CANCER METASTATIC
     Dosage: 250MG/M2/365MG WEEKLY IV
     Route: 042
     Dates: start: 20060601, end: 20060720
  2. CARBOPLATIN [Suspect]
     Dosage: AUC=2/148MG
     Dates: start: 20060706
  3. CARBOPLATIN [Suspect]
     Dosage: AUC=2/148MG
     Dates: start: 20060713
  4. LOVENOX [Concomitant]
  5. LOPRESSOR [Concomitant]
  6. HYDROCHLOROTHIAZIDE [Concomitant]
  7. M.V.I. [Concomitant]
  8. DILAUDID [Concomitant]
  9. AMBIEN [Concomitant]
  10. PHENERGAN HCL [Concomitant]
  11. COLACE [Concomitant]

REACTIONS (4)
  - ANAEMIA [None]
  - DEHYDRATION [None]
  - DYSPNOEA [None]
  - NAUSEA [None]
